FAERS Safety Report 7385027-2 (Version None)
Quarter: 2011Q1

REPORT INFORMATION
  Report Type: 
  Country: None (occurrence: None)
  Receive Date: 20110330
  Receipt Date: 20110321
  Transmission Date: 20110831
  Serious: Yes (Hospitalization)
  Sender: FDA-Public Use
  Company Number: PL-ELI_LILLY_AND_COMPANY-PL201102000592

PATIENT
  Sex: Female
  Weight: 40 kg

DRUGS (10)
  1. MORPHIN /00036303/ [Concomitant]
     Dosage: 20 MG, UNK
     Route: 058
  2. GEMCITABINE HYDROCHLORIDE [Suspect]
     Indication: NON-SMALL CELL LUNG CANCER
     Dosage: 800 MG, UNK
     Dates: start: 20100907
  3. CISPLATIN [Suspect]
     Indication: NON-SMALL CELL LUNG CANCER
     Dosage: 800 MG, UNK
     Dates: start: 20100907
  4. DOLTARD [Concomitant]
     Dosage: 130 MG, BID
     Route: 048
  5. ATROVENT [Concomitant]
     Dosage: 2 DF, QID
     Route: 055
  6. NECITUMUMAB (11F8) (LY3012211) [Suspect]
     Indication: NON-SMALL CELL LUNG CANCER
     Dosage: 800 MG, UNK
     Dates: start: 20100907
  7. POLPRAZOL [Concomitant]
     Dosage: 20 MG, DAILY (1/D)
     Route: 048
  8. KETONAL [Concomitant]
     Dosage: 100 DF, TID
     Route: 042
     Dates: start: 20110129, end: 20110201
  9. THEOVENT [Concomitant]
     Dosage: 300 MG, BID
     Route: 048
  10. MIFLONIDE [Concomitant]
     Dosage: 1 DF, BID
     Route: 055

REACTIONS (1)
  - GASTROINTESTINAL DISORDER [None]
